FAERS Safety Report 4959687-7 (Version None)
Quarter: 2006Q1

REPORT INFORMATION
  Report Type: 
  Country: None (occurrence: None)
  Receive Date: 20060331
  Receipt Date: 20060210
  Transmission Date: 20060701
  Serious: Yes (Other)
  Sender: FDA-Public Use
  Company Number: DE-BRISTOL-MYERS SQUIBB COMPANY-13279245

PATIENT
  Age: 72 Year
  Sex: Male
  Weight: 80 kg

DRUGS (2)
  1. PRAVASIN [Suspect]
     Indication: HYPERLIPIDAEMIA
     Route: 048
     Dates: start: 19960901, end: 20030901
  2. LOCOL [Suspect]
     Indication: HYPERLIPIDAEMIA
     Dates: start: 20030901, end: 20050801

REACTIONS (2)
  - MYALGIA [None]
  - TENDON RUPTURE [None]
